FAERS Safety Report 6994583-5 (Version None)
Quarter: 2010Q3

REPORT INFORMATION
  Report Type: 
  Country: None (occurrence: None)
  Receive Date: 20100917
  Receipt Date: 20100914
  Transmission Date: 20110219
  Serious: Yes (Death, Life-Threatening, Hospitalization, Disabling)
  Sender: FDA-Public Use
  Company Number: US-MERCK-1009USA02852

PATIENT
  Sex: Male
  Weight: 76 kg

DRUGS (3)
  1. ZOLINZA [Suspect]
     Indication: MULTIPLE MYELOMA
     Dosage: 7 DAYS ON, 7 DAYS OFF
     Route: 048
     Dates: start: 20091203, end: 20100109
  2. REVLIMID [Concomitant]
     Dosage: 21 DAYS ON, 7 DAYS OFF
     Route: 048
     Dates: start: 20100109
  3. DEXAMETHASONE [Concomitant]
     Route: 048
     Dates: start: 20100110

REACTIONS (3)
  - PANCYTOPENIA [None]
  - PNEUMONIA [None]
  - SEPTIC SHOCK [None]
